FAERS Safety Report 9774310 (Version 1)
Quarter: 2013Q4

REPORT INFORMATION
  Report Type: Other
  Country: GB (occurrence: GB)
  Receive Date: 20131220
  Receipt Date: 20131220
  Transmission Date: 20140711
  Serious: Yes (Life-Threatening, Hospitalization)
  Sender: FDA-Public Use
  Company Number: GB-TARO PHARMACEUTICALS U.S.A., INC-2013SUN05236

PATIENT
  Age: 62 Year
  Sex: Female
  Weight: 55 kg

DRUGS (8)
  1. WARFARIN [Suspect]
     Indication: ATRIAL FIBRILLATION
     Dosage: 5 MG, OD
     Route: 048
     Dates: start: 20080921, end: 20131129
  2. BISOPROLOL [Concomitant]
  3. LEVOMEPROMAZINE [Concomitant]
  4. MIDAZOLAM [Concomitant]
  5. MORPHINE [Concomitant]
  6. RAMIPRIL [Concomitant]
  7. RANITIDINE [Concomitant]
  8. TAMOXIFEN [Concomitant]

REACTIONS (3)
  - Dyspnoea [Recovered/Resolved]
  - Haemoptysis [Recovered/Resolved]
  - International normalised ratio increased [Recovered/Resolved]
